FAERS Safety Report 10971164 (Version 1)
Quarter: 2015Q1

REPORT INFORMATION
  Report Type: Spontaneous
  Country: US (occurrence: None)
  Receive Date: 20150330
  Receipt Date: 20150330
  Transmission Date: 20150721
  Serious: No
  Sender: FDA-Public Use
  Company Number: None

PATIENT
  Age: 65 Year
  Sex: Female
  Weight: 53.98 kg

DRUGS (3)
  1. PROLIA [Suspect]
     Active Substance: DENOSUMAB
     Indication: OSTEOPOROSIS
     Dosage: 2 INJECTIONS EVERY 6 MONTHS INTO THE MUSCLE
     Route: 030
  2. TIMOLOL EYE DROPS [Concomitant]
  3. CALCIUM (1200MG) AND VIT D [Concomitant]

REACTIONS (3)
  - Rash pruritic [None]
  - Chest pain [None]
  - Rash [None]
